FAERS Safety Report 7567899-1 (Version None)
Quarter: 2011Q2

REPORT INFORMATION
  Report Type: 
  Country: None (occurrence: None)
  Receive Date: 20110616
  Receipt Date: 20110606
  Transmission Date: 20111010
  Serious: Yes (Death)
  Sender: FDA-Public Use
  Company Number: EU-2011-10094

PATIENT
  Age: 66 Year
  Sex: Male

DRUGS (12)
  1. MORPHINE SULFATE [Concomitant]
  2. PANTOPRAZOLE [Concomitant]
  3. KEPPRA [Concomitant]
  4. ZESTRIL [Concomitant]
  5. CELLTOP (ETOPOSIDE) [Concomitant]
  6. SAMSCA [Suspect]
     Indication: HYPONATRAEMIA
     Dosage: 15 MG MILLIGRAM(S), DAILY DOSE, ORAL ; 30 MILLIGRAM(S), DAILY DOSE, ORAL
     Route: 048
     Dates: start: 20101201, end: 20100101
  7. SAMSCA [Suspect]
     Indication: HYPONATRAEMIA
     Dosage: 15 MG MILLIGRAM(S), DAILY DOSE, ORAL ; 30 MILLIGRAM(S), DAILY DOSE, ORAL
     Route: 048
     Dates: start: 20101126, end: 20101130
  8. BACTRIM [Concomitant]
  9. ASPEGIC (ACETYLSALICYLATE LYSINE) [Concomitant]
  10. TENORMIN [Concomitant]
  11. ORAMORPH SR [Concomitant]
  12. ATORVASTATIN CALCIUM [Concomitant]

REACTIONS (1)
  - DEATH [None]
